FAERS Safety Report 17157828 (Version 1)
Quarter: 2019Q4

REPORT INFORMATION
  Report Type: Spontaneous
  Country: US (occurrence: US)
  Receive Date: 20191213
  Receipt Date: 20191213
  Transmission Date: 20200122
  Serious: Yes (Death)
  Sender: FDA-Public Use
  Company Number: None

PATIENT
  Age: 43 Year
  Sex: Female

DRUGS (2)
  1. CAPECITABANE [Suspect]
     Active Substance: CAPECITABINE
     Indication: BREAST CANCER FEMALE
     Dosage: ?          OTHER FREQUENCY:14 DAYS ON 7 OFF;?
     Route: 048
     Dates: start: 20190122, end: 20191001
  2. CAPCITABINE [Suspect]
     Active Substance: CAPECITABINE
     Indication: BREAST CANCER FEMALE
     Dosage: ?          OTHER FREQUENCY:BID FOR 14 DAYS ON;?
     Route: 048
     Dates: start: 20190122, end: 20191001

REACTIONS (1)
  - Death [None]

NARRATIVE: CASE EVENT DATE: 20191001
